FAERS Safety Report 7411808-2 (Version None)
Quarter: 2011Q2

REPORT INFORMATION
  Report Type: 
  Country: None (occurrence: None)
  Receive Date: 20110413
  Receipt Date: 20110127
  Transmission Date: 20111010
  Serious: No
  Sender: FDA-Public Use
  Company Number: PR-BRISTOL-MYERS SQUIBB COMPANY-15514631

PATIENT
  Age: 34 Year
  Sex: Male

DRUGS (2)
  1. ERBITUX [Suspect]
     Indication: SKIN CANCER
     Dosage: FOR FOUR MONTHS
  2. ERBITUX [Suspect]
     Indication: TONGUE NEOPLASM MALIGNANT STAGE UNSPECIFIED
     Dosage: FOR FOUR MONTHS

REACTIONS (1)
  - ADVERSE EVENT [None]
